FAERS Safety Report 14378167 (Version 2)
Quarter: 2021Q2

REPORT INFORMATION
  Report Type: Spontaneous
  Country: AE (occurrence: AE)
  Receive Date: 20180111
  Receipt Date: 20210506
  Transmission Date: 20210716
  Serious: Yes (Other)
  Sender: FDA-Public Use
  Company Number: AE-ALLERGAN-1801098US

PATIENT
  Sex: Female

DRUGS (1)
  1. BOTULINUM TOXIN TYPE A UNK [Suspect]
     Active Substance: BOTULINUM TOXIN TYPE A
     Indication: OBESITY
     Dosage: UNK, SINGLE

REACTIONS (4)
  - Off label use [Unknown]
  - Gastritis haemorrhagic [Unknown]
  - Septic shock [Unknown]
  - Gastrointestinal necrosis [Unknown]
